FAERS Safety Report 11594147 (Version 3)
Quarter: 2016Q2

REPORT INFORMATION
  Report Type: Spontaneous
  Country: PT (occurrence: PT)
  Receive Date: 20151005
  Receipt Date: 20160602
  Transmission Date: 20160815
  Serious: Yes (Other)
  Sender: FDA-Public Use
  Company Number: PT-TEVA-596928ISR

PATIENT
  Age: 54 Year
  Sex: Female
  Weight: 58 kg

DRUGS (9)
  1. NOVORAPID [Concomitant]
     Active Substance: INSULIN ASPART
     Indication: DIABETES MELLITUS
     Dosage: 27 IU (INTERNATIONAL UNIT) DAILY;
     Route: 058
  2. LANTUS [Concomitant]
     Active Substance: INSULIN GLARGINE
     Indication: DIABETES MELLITUS
     Dosage: 6 IU (INTERNATIONAL UNIT) DAILY;
     Route: 058
  3. DORMICUM [Suspect]
     Active Substance: MIDAZOLAM\MIDAZOLAM HYDROCHLORIDE
     Indication: DEPRESSION
     Route: 048
     Dates: start: 20150817
  4. ALPRAZOLAM PAZOLAM 1 MG COMPRIMIDOS [Suspect]
     Active Substance: ALPRAZOLAM
     Indication: DEPRESSION
     Dosage: 1 MILLIGRAM DAILY;
     Route: 048
     Dates: start: 20150817
  5. DIAZEPAM RATIOPHARM 5 MG COMPRIMIDOS [Suspect]
     Active Substance: DIAZEPAM
     Indication: DEPRESSION
     Dosage: 5 MILLIGRAM DAILY;
     Route: 048
     Dates: start: 20150817
  6. RIVOTRIL [Suspect]
     Active Substance: CLONAZEPAM
     Indication: DEPRESSION
     Route: 048
     Dates: start: 20150817, end: 20150819
  7. SARGENOR 5 [Concomitant]
     Dosage: 5000 MILLIGRAM DAILY;
     Route: 048
  8. ENALAPRIL RATIOPHARM [Concomitant]
     Active Substance: ENALAPRIL
     Indication: HYPERTENSION
     Dosage: 5 MILLIGRAM DAILY;
     Route: 048
  9. GLUCOVANCE [Concomitant]
     Active Substance: GLYBURIDE\METFORMIN HYDROCHLORIDE
     Indication: DIABETES MELLITUS
     Dosage: 1 DOSAGE FORMS DAILY;
     Route: 048

REACTIONS (3)
  - Syncope [Recovered/Resolved]
  - Apathy [Recovered/Resolved]
  - Fatigue [Recovered/Resolved]

NARRATIVE: CASE EVENT DATE: 20150819
